FAERS Safety Report 24931783 (Version 1)
Quarter: 2025Q1

REPORT INFORMATION
  Report Type: Report from Study
  Country: US (occurrence: US)
  Receive Date: 20250205
  Receipt Date: 20250205
  Transmission Date: 20250409
  Serious: No
  Sender: EXELIXIS
  Company Number: US-EXELIXIS-CABO-24078796

PATIENT
  Sex: Male
  Weight: 75.193 kg

DRUGS (1)
  1. CABOMETYX [Suspect]
     Active Substance: CABOZANTINIB S-MALATE
     Indication: Hepatic cancer
     Dosage: 40 MG, QD
     Route: 048
     Dates: start: 20240522

REACTIONS (3)
  - Diarrhoea [Unknown]
  - Alpha 1 foetoprotein increased [Recovering/Resolving]
  - General physical health deterioration [Unknown]
